FAERS Safety Report 26117069 (Version 1)
Quarter: 2025Q4

REPORT INFORMATION
  Report Type: Spontaneous
  Country: US (occurrence: None)
  Receive Date: 20251202
  Receipt Date: 20251202
  Transmission Date: 20260117
  Serious: Yes (Other)
  Sender: FDA-CTU
  Company Number: None

PATIENT
  Age: 28 Year
  Sex: Male
  Weight: 60.5 kg

DRUGS (4)
  1. RIFABUTIN [Suspect]
     Active Substance: RIFABUTIN
     Indication: Drug level
     Dosage: ?300 MG DAILY ORAL
     Route: 048
     Dates: start: 20251022, end: 20251103
  2. GSK4524184 100 mg tablet [Concomitant]
     Dates: start: 20251014, end: 20251014
  3. GSK4524184 100 mg tablet [Concomitant]
     Dates: start: 20251101, end: 20251101
  4. Acetaminophen 500 mg PO q 6 hours prn [Concomitant]
     Dates: start: 20251029, end: 20251102

REACTIONS (13)
  - Chromaturia [None]
  - Headache [None]
  - Pyrexia [None]
  - Myalgia [None]
  - Dysgeusia [None]
  - Nausea [None]
  - Fatigue [None]
  - Ear discomfort [None]
  - Thrombocytopenia [None]
  - Lymphopenia [None]
  - Leukopenia [None]
  - Upper-airway cough syndrome [None]
  - Neutropenia [None]

NARRATIVE: CASE EVENT DATE: 20251101
